FAERS Safety Report 14760706 (Version 2)
Quarter: 2018Q2

REPORT INFORMATION
  Report Type: Spontaneous
  Country: US (occurrence: US)
  Receive Date: 20180414
  Receipt Date: 20180517
  Transmission Date: 20180711
  Serious: No
  Sender: FDA-Public Use
  Company Number: US-JNJFOC-20180332917

PATIENT
  Age: 30 Year
  Sex: Female
  Weight: 79.38 kg

DRUGS (4)
  1. MENS ROGAINE EXTRA STRENGTH [Suspect]
     Active Substance: MINOXIDIL
     Indication: ALOPECIA
     Dosage: 2 PUMPS, 2 X A DAY
     Route: 061
     Dates: start: 20180312, end: 20180318
  2. DEPAKENE [Concomitant]
     Active Substance: VALPROIC ACID
     Indication: MOOD SWINGS
     Dosage: 15 YEARS
     Route: 065
  3. MULTIVITAMINS [Concomitant]
     Active Substance: VITAMINS
     Indication: ROUTINE HEALTH MAINTENANCE
     Route: 065
  4. MENS ROGAINE EXTRA STRENGTH [Suspect]
     Active Substance: MINOXIDIL
     Route: 061

REACTIONS (4)
  - Burning sensation [Recovered/Resolved]
  - Off label use [Unknown]
  - Erythema [Recovered/Resolved]
  - Product use issue [Unknown]

NARRATIVE: CASE EVENT DATE: 20180312
